FAERS Safety Report 9548484 (Version 1)
Quarter: 2013Q3

REPORT INFORMATION
  Report Type: Spontaneous
  Country: US (occurrence: None)
  Receive Date: 20130919
  Receipt Date: 20130919
  Transmission Date: 20140515
  Serious: Yes (Hospitalization, Other)
  Sender: FDA-Public Use
  Company Number: 1219540-2013-0009

PATIENT
  Age: 47 Year
  Sex: Male
  Weight: 113.4 kg

DRUGS (1)
  1. EQUATE EFFERVESCENT COLD RELIEF TABLETS [Suspect]
     Indication: NASOPHARYNGITIS
     Dosage: 2 TABLETS OID ORAL
     Dates: start: 20130810

REACTIONS (1)
  - Hypersensitivity [None]
